FAERS Safety Report 10601513 (Version 1)
Quarter: 2014Q4

REPORT INFORMATION
  Report Type: Spontaneous
  Country: US (occurrence: None)
  Receive Date: 20141121
  Receipt Date: 20141121
  Transmission Date: 20150529
  Serious: No
  Sender: FDA-Public Use
  Company Number: None

PATIENT
  Age: 47 Year
  Sex: Female
  Weight: 63.5 kg

DRUGS (1)
  1. CARAFATE [Suspect]
     Active Substance: SUCRALFATE
     Indication: GASTROOESOPHAGEAL REFLUX DISEASE
     Dosage: 10 MLS, FOUR TIMES DAILY, TAKEN BY MOUTH
     Route: 048
     Dates: start: 20141031

REACTIONS (6)
  - Throat irritation [None]
  - Tremor [None]
  - Hypoaesthesia [None]
  - Dysphagia [None]
  - Paraesthesia [None]
  - Dyspepsia [None]

NARRATIVE: CASE EVENT DATE: 20141031
